FAERS Safety Report 9324538 (Version 3)
Quarter: 2014Q1

REPORT INFORMATION
  Report Type: Spontaneous
  Country: US (occurrence: US)
  Receive Date: 20130603
  Receipt Date: 20140227
  Transmission Date: 20141002
  Serious: Yes (Hospitalization)
  Sender: FDA-Public Use
  Company Number: US-B.I. PHARMACEUTICALS,INC./RIDGEFIELD-2013-BI-15151BP

PATIENT
  Sex: Male
  Weight: 113.4 kg

DRUGS (14)
  1. PRADAXA [Suspect]
     Indication: LEFT VENTRICULAR DYSFUNCTION
     Dosage: 300 MG
     Route: 065
     Dates: start: 20111211, end: 20120120
  2. PRADAXA [Suspect]
     Indication: ATRIAL FIBRILLATION
  3. RANEXA [Concomitant]
     Indication: ANGINA PECTORIS
     Dosage: 1000 MG
     Route: 048
  4. LISINOPRIL [Concomitant]
     Dosage: 10 MG
     Route: 048
  5. SIMVASTATIN [Concomitant]
     Indication: HYPERLIPIDAEMIA
     Dosage: 20 MG
     Route: 048
  6. CARVEDILOL [Concomitant]
     Dosage: 25 MG
     Route: 048
  7. ISOSORBIDE [Concomitant]
     Dosage: 60 MG
     Route: 048
  8. TRAZODONE [Concomitant]
     Indication: SLEEP DISORDER
     Dosage: 200 MG
     Route: 048
  9. LAMOTRIGINE [Concomitant]
     Indication: BIPOLAR DISORDER
     Dosage: 250 MG
     Route: 065
  10. FUROSEMIDE [Concomitant]
     Dosage: 40 MG
     Route: 048
  11. LEXAPRO [Concomitant]
     Indication: ANXIETY
     Dosage: 10 MG
     Route: 048
  12. LEXAPRO [Concomitant]
     Indication: DEPRESSION
  13. DETROL [Concomitant]
     Indication: URINE ABNORMALITY
     Dosage: 4 MG
     Route: 048
  14. ASPIRIN [Concomitant]
     Route: 065

REACTIONS (1)
  - Gastrointestinal haemorrhage [Unknown]
